FAERS Safety Report 13404913 (Version 1)
Quarter: 2017Q2

REPORT INFORMATION
  Report Type: Spontaneous
  Country: JP (occurrence: JP)
  Receive Date: 20170405
  Receipt Date: 20170405
  Transmission Date: 20170830
  Serious: Yes (Other)
  Sender: FDA-Public Use
  Company Number: JP-PFIZER INC-2017138497

PATIENT
  Sex: Female

DRUGS (4)
  1. FLUNITRAZEPAM [Suspect]
     Active Substance: FLUNITRAZEPAM
     Dosage: UNK
     Route: 048
     Dates: end: 20170306
  2. RILMAZAFONE [Suspect]
     Active Substance: RILMAZAFONE
     Dosage: UNK
     Route: 048
     Dates: end: 20170313
  3. EFFEXOR [Suspect]
     Active Substance: VENLAFAXINE HYDROCHLORIDE
     Dosage: 75 MG, DAILY
     Route: 048
     Dates: start: 20161121, end: 20170313
  4. CLOXAZOLAM [Suspect]
     Active Substance: CLOXAZOLAM
     Dosage: UNK
     Route: 048

REACTIONS (1)
  - Abortion spontaneous [Unknown]

NARRATIVE: CASE EVENT DATE: 20170327
